FAERS Safety Report 9783065 (Version 3)
Quarter: 2014Q1

REPORT INFORMATION
  Report Type: Spontaneous
  Country: FR (occurrence: FR)
  Receive Date: 20131226
  Receipt Date: 20140103
  Transmission Date: 20141002
  Serious: Yes (Hospitalization)
  Sender: FDA-Public Use
  Company Number: FR-JNJFOC-20130418044

PATIENT
  Age: 79 Year
  Sex: Female

DRUGS (12)
  1. CONTRAMAL [Suspect]
     Indication: PAIN
     Route: 065
     Dates: start: 20130205, end: 20130205
  2. SUFENTANIL [Suspect]
     Indication: GENERAL ANAESTHESIA
     Route: 042
     Dates: start: 20130205, end: 20130205
  3. TRACRIUM [Suspect]
     Indication: GENERAL ANAESTHESIA
     Route: 042
     Dates: start: 20130205, end: 20130205
  4. CHLORHEXIDINE [Suspect]
     Indication: INFECTION PROPHYLAXIS
     Route: 065
     Dates: start: 20130205
  5. PERFALGAN [Suspect]
     Indication: PAIN
     Route: 042
     Dates: start: 20130205
  6. ZOPHREN [Suspect]
     Indication: PROPHYLAXIS OF NAUSEA AND VOMITING
     Route: 065
     Dates: start: 20130205
  7. DIPRIVAN [Suspect]
     Indication: GENERAL ANAESTHESIA
     Route: 042
     Dates: start: 20130205, end: 20130205
  8. DEXAMETHASONE [Suspect]
     Indication: GENERAL ANAESTHESIA
     Route: 042
     Dates: start: 20130205, end: 20130205
  9. CEFAZOLINE SODIUM [Suspect]
     Indication: ANTIBIOTIC PROPHYLAXIS
     Route: 042
     Dates: start: 20130205, end: 20130205
  10. KETAMINE [Suspect]
     Indication: GENERAL ANAESTHESIA
     Route: 065
     Dates: start: 20130205, end: 20130205
  11. DROLEPTAN [Suspect]
     Indication: GENERAL ANAESTHESIA
     Route: 065
     Dates: start: 20130205, end: 20130205
  12. FEMARA [Concomitant]
     Indication: CANCER PAIN
     Route: 065

REACTIONS (4)
  - Hypersensitivity [Recovered/Resolved]
  - Urticaria [Recovered/Resolved]
  - Hypotension [Recovered/Resolved]
  - Face oedema [Recovered/Resolved]
